FAERS Safety Report 23584050 (Version 5)
Quarter: 2024Q4

REPORT INFORMATION
  Report Type: Spontaneous
  Country: US (occurrence: US)
  Receive Date: 20240301
  Receipt Date: 20241025
  Transmission Date: 20250115
  Serious: Yes (Other)
  Sender: BRISTOL-MYERS SQUIBB COMPANY
  Company Number: US-BRISTOL-MYERS SQUIBB COMPANY-2024-031565

PATIENT
  Age: 78 Year
  Sex: Male

DRUGS (4)
  1. LENALIDOMIDE [Suspect]
     Active Substance: LENALIDOMIDE
     Indication: Plasma cell myeloma
     Dosage: TAKE 1 CAPSULE WHOLE BY MOUTH EVERY DAY WITH GLASS OF WATER. DO NOT OPEN, CRUSH, CHEW, BREAK OR DISS
     Route: 048
     Dates: start: 20230216
  2. LENALIDOMIDE [Suspect]
     Active Substance: LENALIDOMIDE
     Dosage: TAKE 1 CAPSULE WHOLE BY MOUTH EVERY DAY WITH GLASS OF WATER. DO NOT OPEN, CRUSH, CHEW, BREAK OR DISS
     Route: 048
     Dates: start: 20230407
  3. LENALIDOMIDE [Suspect]
     Active Substance: LENALIDOMIDE
     Dosage: TAKE 1 CAPSULE BY MOUTH EVERY DAY FOR 28 DAYS (NO BREAKS)
     Route: 048
  4. LENALIDOMIDE [Suspect]
     Active Substance: LENALIDOMIDE
     Dosage: TAKE 1 CAPSULE (2.5MG) WHOLE BY MOUTH DAILY WITH GLASS OF WATER. DO NOT OPEN, CRUSH, CHEW, BREAK, OR
     Route: 048

REACTIONS (2)
  - Renal impairment [Recovering/Resolving]
  - Product dose omission issue [Unknown]
